FAERS Safety Report 17360893 (Version 2)
Quarter: 2020Q3

REPORT INFORMATION
  Report Type: Spontaneous
  Country: US (occurrence: US)
  Receive Date: 20200203
  Receipt Date: 20200810
  Transmission Date: 20201102
  Serious: No
  Sender: FDA-Public Use
  Company Number: US-SA-2020SA025121

PATIENT

DRUGS (17)
  1. VITAMIN D [VITAMIN D NOS] [Concomitant]
     Active Substance: VITAMIN D NOS
     Dosage: UNK
  2. AMITRIPTYLINE [Concomitant]
     Active Substance: AMITRIPTYLINE
     Dosage: UNK
  3. TIZANIDINE HCL [Concomitant]
     Active Substance: TIZANIDINE HYDROCHLORIDE
     Dosage: UNK
  4. VITAMIN B COMPLEX [Concomitant]
     Active Substance: CYANOCOBALAMIN\DEXPANTHENOL\NIACINAMIDE\PYRIDOXINE HYDROCHLORIDE\RIBOFLAVIN 5^-PHOSPHATE SODIUM\THIAMINE HYDROCHLORIDE\VITAMIN B COMPLEX
  5. ACYCLOVIR [ACICLOVIR] [Concomitant]
     Active Substance: ACYCLOVIR
     Dosage: UNK
  6. ZOLPIDEM [Concomitant]
     Active Substance: ZOLPIDEM TARTRATE
     Dosage: UNK
  7. COENZYME Q10 [Concomitant]
     Active Substance: DIETARY SUPPLEMENT\UBIDECARENONE
     Dosage: UNK
  8. FISH OIL [Concomitant]
     Active Substance: FISH OIL
     Dosage: UNK
  9. DONEPEZIL. [Concomitant]
     Active Substance: DONEPEZIL
     Dosage: UNK
  10. AMBIEN CR [Concomitant]
     Active Substance: ZOLPIDEM TARTRATE
     Dosage: UNK
  11. GABAPENTIN. [Concomitant]
     Active Substance: GABAPENTIN
     Dosage: UNK
  12. CALCIUM [Concomitant]
     Active Substance: CALCIUM
     Dosage: UNK
  13. SIMVASTATIN. [Concomitant]
     Active Substance: SIMVASTATIN
     Dosage: UNK
  14. SUMATRIPTAN. [Concomitant]
     Active Substance: SUMATRIPTAN
     Dosage: UNK
  15. MAGNESIUM [Concomitant]
     Active Substance: MAGNESIUM
     Dosage: UNK
  16. FINASTERIDE. [Concomitant]
     Active Substance: FINASTERIDE
     Dosage: UNK
  17. AUBAGIO [Suspect]
     Active Substance: TERIFLUNOMIDE
     Indication: PRODUCT USED FOR UNKNOWN INDICATION
     Dosage: 7 MG, QD
     Route: 048
     Dates: start: 20200114

REACTIONS (13)
  - Micturition urgency [Unknown]
  - Migraine [Not Recovered/Not Resolved]
  - Anxiety [Not Recovered/Not Resolved]
  - Vitreous floaters [Not Recovered/Not Resolved]
  - Hypoaesthesia [Not Recovered/Not Resolved]
  - Gait disturbance [Unknown]
  - Muscle spasms [Unknown]
  - Mobility decreased [Not Recovered/Not Resolved]
  - Pollakiuria [Unknown]
  - Balance disorder [Not Recovered/Not Resolved]
  - Tic [Not Recovered/Not Resolved]
  - Neck injury [Not Recovered/Not Resolved]
  - Pain in extremity [Not Recovered/Not Resolved]
